FAERS Safety Report 6810067-9 (Version None)
Quarter: 2010Q2

REPORT INFORMATION
  Report Type: 
  Country: None (occurrence: None)
  Receive Date: 20100630
  Receipt Date: 20100616
  Transmission Date: 20101027
  Serious: Yes (Hospitalization, Other)
  Sender: FDA-Public Use
  Company Number: JP-ROCHE-706824

PATIENT
  Age: 63 Year
  Sex: Female
  Weight: 47 kg

DRUGS (14)
  1. AVASTIN [Suspect]
     Indication: LUNG ADENOCARCINOMA METASTATIC
     Route: 041
     Dates: start: 20100319
  2. AVASTIN [Suspect]
     Dosage: THREE COURSES
     Route: 041
     Dates: start: 20100323, end: 20100506
  3. CARBOPLATIN [Concomitant]
     Dosage: DOSAGE UNCERTAIN.
     Route: 041
  4. PACLITAXEL [Concomitant]
     Dosage: DOSAGE UNCERTAIN
     Route: 041
  5. GRANISETRON HYDROCHLORIDE [Concomitant]
     Dosage: DOSASE IN UNCERTAIN
  6. DEXAMETHASONE [Concomitant]
     Dosage: DOSAGE IS UNCERTAIN
  7. RESTAMIN [Concomitant]
     Dosage: DOSAGE IS UNCERTAIN
     Route: 048
  8. AMLODIN [Concomitant]
     Dosage: DOSAGE IS UNCERTAIN
     Route: 048
  9. RENIVACE [Concomitant]
     Dosage: DOSAGE IS UNCERTAIN
     Route: 048
  10. CODEINE PHOSPHATE [Concomitant]
     Dosage: POWDERED MEDICINE, DOSAGE IS UNCERTAIN
     Route: 048
  11. LENDORMIN [Concomitant]
     Dosage: LENDORMIN D, DOSAGE IS UNCERTAIN
     Route: 048
  12. PROTECADIN [Concomitant]
     Dosage: DOSAGE IS UNCERTAIN
     Route: 048
  13. PRIMPERAN TAB [Concomitant]
     Dosage: DOSAGE IS UNCERTAIN, DOSEFORM: UNCERTAINITY
  14. LOXONIN [Concomitant]
     Dosage: DOSAGE IS UNCERTAIN, DOSEFORM UNCERTAINITY

REACTIONS (3)
  - CEREBRAL HAEMORRHAGE [None]
  - MENINGISM [None]
  - SUBCUTANEOUS HAEMATOMA [None]
